FAERS Safety Report 24930808 (Version 2)
Quarter: 2025Q3

REPORT INFORMATION
  Report Type: Report from Study
  Country: US (occurrence: US)
  Receive Date: 20250205
  Receipt Date: 20250804
  Transmission Date: 20251021
  Serious: No
  Sender: AURINIA PHARMACEUTICALS
  Company Number: US-AURINIA PHARMACEUTICALS INC.-AUR-007089

PATIENT
  Sex: Female

DRUGS (3)
  1. LUPKYNIS [Suspect]
     Active Substance: VOCLOSPORIN
     Indication: Lupus nephritis
     Dosage: 23.7 MILLIGRAM, BID
     Route: 048
     Dates: start: 20240808
  2. LUPKYNIS [Suspect]
     Active Substance: VOCLOSPORIN
     Dosage: 23.7 MILLIGRAM, BID
     Route: 048
  3. LUPKYNIS [Suspect]
     Active Substance: VOCLOSPORIN
     Dosage: 23.7 MILLIGRAM, BID
     Route: 048

REACTIONS (12)
  - Dizziness [Unknown]
  - Breast mass [Unknown]
  - Pain [Unknown]
  - Back pain [Unknown]
  - Serum serotonin increased [Unknown]
  - Procedural pain [Unknown]
  - Arthralgia [Unknown]
  - Memory impairment [Unknown]
  - Groin pain [Unknown]
  - Vision blurred [Not Recovered/Not Resolved]
  - Protein urine present [Unknown]
  - Product dose omission issue [Unknown]
